FAERS Safety Report 4917832-3 (Version None)
Quarter: 2006Q1

REPORT INFORMATION
  Report Type: 
  Country: None (occurrence: None)
  Receive Date: 20060113
  Receipt Date: 20051018
  Transmission Date: 20060701
  Serious: No
  Sender: FDA-Public Use
  Company Number: 2005SP003577

PATIENT
  Age: 78 Year
  Sex: Male
  Weight: 61.2356 kg

DRUGS (9)
  1. LUNESTA [Suspect]
     Indication: INITIAL INSOMNIA
     Dosage: 2 MG; HS; ORAL
     Route: 048
     Dates: start: 20051001, end: 20051001
  2. ZOCOR [Concomitant]
  3. PLETAL [Concomitant]
  4. MAVIK [Concomitant]
  5. AVANDIA [Concomitant]
  6. PRANDIN [Concomitant]
  7. CELEBREX [Concomitant]
  8. ACIPHEX [Concomitant]
  9. MULTIVITAMIN [Concomitant]

REACTIONS (2)
  - DRUG INEFFECTIVE [None]
  - INITIAL INSOMNIA [None]
